FAERS Safety Report 14272430 (Version 1)
Quarter: 2017Q4

REPORT INFORMATION
  Report Type: Spontaneous
  Country: US (occurrence: US)
  Receive Date: 20171211
  Receipt Date: 20171211
  Transmission Date: 20180321
  Serious: Yes (Other)
  Sender: FDA-Public Use
  Company Number: US-OTSUKA-2017_008997

PATIENT
  Sex: Female

DRUGS (1)
  1. ABILIFY [Suspect]
     Active Substance: ARIPIPRAZOLE
     Indication: POST-TRAUMATIC STRESS DISORDER
     Dosage: 10 MG, UNK
     Route: 048
     Dates: start: 2012

REACTIONS (4)
  - Product use in unapproved indication [Unknown]
  - Performance status decreased [Not Recovered/Not Resolved]
  - Bipolar disorder [Unknown]
  - Depression [Not Recovered/Not Resolved]
